FAERS Safety Report 7727751-5 (Version None)
Quarter: 2011Q3

REPORT INFORMATION
  Report Type: 
  Country: None (occurrence: None)
  Receive Date: 20110902
  Receipt Date: 20110824
  Transmission Date: 20111222
  Serious: Yes (Hospitalization)
  Sender: FDA-Public Use
  Company Number: US-ASTRAZENECA-2011SE51246

PATIENT
  Age: 68 Year
  Sex: Male
  Weight: 97.5 kg

DRUGS (7)
  1. NEXIUM [Suspect]
     Indication: GASTROOESOPHAGEAL REFLUX DISEASE
     Route: 048
     Dates: start: 20040101, end: 20080101
  2. CRESTOR [Suspect]
     Route: 048
  3. LIPITOR [Concomitant]
     Dates: start: 20030101
  4. CALCIUM CARBONATE [Concomitant]
     Route: 048
  5. METOPROLOL [Concomitant]
     Route: 048
     Dates: start: 20030301
  6. OMEPRAZOLE [Suspect]
     Route: 048
     Dates: start: 20090101
  7. PLAVIX [Concomitant]
     Indication: ANTICOAGULANT THERAPY
     Route: 048
     Dates: start: 20030301

REACTIONS (6)
  - CHEST PAIN [None]
  - DRUG INEFFECTIVE [None]
  - PNEUMONIA [None]
  - DRUG DOSE OMISSION [None]
  - CARDIAC DISORDER [None]
  - GASTROOESOPHAGEAL REFLUX DISEASE [None]
